FAERS Safety Report 9248776 (Version 1)
Quarter: 2013Q2

REPORT INFORMATION
  Report Type: Spontaneous
  Country: FR (occurrence: FR)
  Receive Date: 20130423
  Receipt Date: 20130423
  Transmission Date: 20140414
  Serious: Yes (Other)
  Sender: FDA-Public Use
  Company Number: FR-ROCHE-1217098

PATIENT
  Age: 55 Year
  Sex: Female

DRUGS (5)
  1. OMALIZUMAB [Suspect]
     Indication: ASTHMA
     Route: 065
  2. OMALIZUMAB [Suspect]
     Route: 065
  3. SERETIDE [Concomitant]
  4. SYMBICORT [Concomitant]
  5. LEVOTHYROX [Concomitant]

REACTIONS (1)
  - Ischaemic stroke [Recovered/Resolved]
